FAERS Safety Report 9752986 (Version 2)
Quarter: 2014Q1

REPORT INFORMATION
  Report Type: Report from Study
  Country: US (occurrence: US)
  Receive Date: 20131213
  Receipt Date: 20140102
  Transmission Date: 20141002
  Serious: Yes (Hospitalization)
  Sender: FDA-Public Use
  Company Number: US-JNJFOC-20131204735

PATIENT
  Age: 16 Year
  Sex: Male
  Weight: 80.9 kg

DRUGS (30)
  1. REMICADE [Suspect]
     Indication: INFLAMMATORY BOWEL DISEASE
     Route: 042
     Dates: start: 20050807, end: 20100507
  2. ATENOLOL [Concomitant]
     Route: 065
  3. AZELASTINE [Concomitant]
     Route: 045
  4. BISACODYL [Concomitant]
     Route: 065
  5. PULMICORT [Concomitant]
     Route: 065
  6. FIORICET [Concomitant]
     Route: 065
  7. TUMS [Concomitant]
     Route: 065
  8. VITAMIN D [Concomitant]
     Route: 065
  9. KAPVAY [Concomitant]
     Route: 065
  10. CREATINE MONOHYDRATE [Concomitant]
     Route: 065
  11. BENADRYL [Concomitant]
     Route: 065
  12. FLUDROCORTISONE ACETATE [Concomitant]
     Route: 065
  13. GABAPENTIN [Concomitant]
     Route: 065
  14. POLYETHYLENE GLYCOL [Concomitant]
     Route: 065
  15. IMMUNOGLOBULIN [Concomitant]
     Route: 042
     Dates: start: 20080808
  16. LACRI-LUBE OINTMENT [Concomitant]
     Route: 065
     Dates: start: 20080808
  17. XOPENEX [Concomitant]
     Route: 065
  18. MELATONIN [Concomitant]
     Route: 065
  19. MODAFINIL [Concomitant]
     Route: 065
  20. MULTIVITAMINS [Concomitant]
     Route: 065
  21. NALTREXONE [Concomitant]
     Route: 065
  22. ONDANSETRON [Concomitant]
     Route: 065
  23. COENZYME Q10 [Concomitant]
     Route: 065
  24. VITAMINS E AND C [Concomitant]
     Route: 065
  25. SELENIUM [Concomitant]
     Route: 065
  26. RIBOFLAVIN [Concomitant]
     Route: 065
  27. LIPOIC ACID [Concomitant]
     Route: 065
  28. FOLIC ACID [Concomitant]
     Route: 065
  29. TYLENOL [Concomitant]
     Route: 065
  30. 5-ASA [Concomitant]
     Route: 048

REACTIONS (1)
  - Meningitis aseptic [Recovered/Resolved]
